FAERS Safety Report 23431346 (Version 1)
Quarter: 2024Q1

REPORT INFORMATION
  Report Type: Spontaneous
  Country: US (occurrence: US)
  Receive Date: 20240123
  Receipt Date: 20240123
  Transmission Date: 20240409
  Serious: No
  Sender: FDA-Public Use
  Company Number: US-ALCON LABORATORIES-ALC2023US005118

PATIENT

DRUGS (2)
  1. BETADINE [Suspect]
     Active Substance: POVIDONE-IODINE
     Indication: Premedication
     Dosage: UNK
     Route: 065
     Dates: start: 20150730
  2. BETADINE [Suspect]
     Active Substance: POVIDONE-IODINE
     Indication: Seroma

REACTIONS (1)
  - Urticaria [Unknown]
